FAERS Safety Report 5501998-0 (Version None)
Quarter: 2007Q4

REPORT INFORMATION
  Report Type: 
  Country: None (occurrence: None)
  Receive Date: 20071030
  Receipt Date: 20071023
  Transmission Date: 20080405
  Serious: Yes (Hospitalization)
  Sender: FDA-Public Use
  Company Number: B0487471A

PATIENT
  Age: 59 Year
  Sex: Female
  Weight: 48 kg

DRUGS (5)
  1. ARIXTRA [Suspect]
     Indication: THROMBOSIS PROPHYLAXIS
     Dosage: 2.5MG PER DAY
     Route: 058
     Dates: start: 20070712, end: 20070713
  2. AROMASIN [Concomitant]
     Indication: BREAST CANCER
     Dosage: 25MG PER DAY
     Route: 048
  3. AMLODIPINE [Concomitant]
     Indication: HYPERTENSION
     Dosage: 5MG PER DAY
     Route: 048
  4. NU-LOTAN [Concomitant]
     Indication: HYPERTENSION
     Dosage: 50MG PER DAY
     Route: 048
  5. MAP (RED BLOOD CELLS) [Concomitant]
     Route: 042
     Dates: start: 20070711

REACTIONS (3)
  - EMBOLISM [None]
  - PARAESTHESIA [None]
  - POST PROCEDURAL HAEMORRHAGE [None]
